FAERS Safety Report 6566468-X (Version None)
Quarter: 2010Q1

REPORT INFORMATION
  Report Type: 
  Country: None (occurrence: None)
  Receive Date: 20100202
  Receipt Date: 20100122
  Transmission Date: 20100710
  Serious: Yes (Hospitalization)
  Sender: FDA-Public Use
  Company Number: JP-AMGEN-US381862

PATIENT
  Age: 70 Year
  Sex: Female

DRUGS (3)
  1. ENBREL [Suspect]
     Indication: RHEUMATOID ARTHRITIS
     Route: 058
  2. ENBREL [Suspect]
     Indication: AMYLOIDOSIS
     Route: 058
  3. CORTICOSTEROID NOS [Concomitant]
     Indication: RHEUMATOID ARTHRITIS
     Dosage: NOT SPECIFIED

REACTIONS (2)
  - CELLULITIS [None]
  - RENAL FAILURE [None]
